FAERS Safety Report 25661194 (Version 2)
Quarter: 2025Q4

REPORT INFORMATION
  Report Type: Report from Study
  Country: US (occurrence: US)
  Receive Date: 20250808
  Receipt Date: 20251013
  Transmission Date: 20260117
  Serious: Yes (Other)
  Sender: MALLINCKRODT
  Company Number: US-MALLINCKRODT-MNK202501795

PATIENT
  Age: 65 Year
  Sex: Female

DRUGS (2)
  1. CORTICOTROPIN [Suspect]
     Active Substance: CORTICOTROPIN
     Indication: Sarcoidosis
     Dosage: 80 UNITS
     Route: 058
     Dates: start: 20210507
  2. TRULICITY [Concomitant]
     Active Substance: DULAGLUTIDE
     Dosage: UNKNOWN

REACTIONS (5)
  - Fall [Unknown]
  - Ankle fracture [Unknown]
  - Limb discomfort [Unknown]
  - Contusion [Recovering/Resolving]
  - Gait inability [Unknown]

NARRATIVE: CASE EVENT DATE: 20250701
